FAERS Safety Report 5404756-0 (Version None)
Quarter: 2007Q3

REPORT INFORMATION
  Report Type: 
  Country: None (occurrence: None)
  Receive Date: 20070801
  Receipt Date: 20070723
  Transmission Date: 20080115
  Serious: Yes (Life-Threatening)
  Sender: FDA-Public Use
  Company Number: 2007AL002994

PATIENT
  Age: 71 Year
  Sex: Female

DRUGS (5)
  1. CITALOPRAM HYDROBROMIDE [Suspect]
     Indication: DEPRESSION
     Dosage: 40 MG;QD;PO
     Route: 048
     Dates: end: 20070708
  2. LISINOPRIL [Concomitant]
  3. BENDROFLUMETHIAZIDE [Concomitant]
  4. METOCLOPRAMIDE [Concomitant]
  5. OMEPRAZOLE [Concomitant]

REACTIONS (2)
  - RENAL IMPAIRMENT [None]
  - SEROTONIN SYNDROME [None]
